FAERS Safety Report 9711839 (Version 1)
Quarter: 2013Q4

REPORT INFORMATION
  Report Type: Spontaneous
  Country: US (occurrence: US)
  Receive Date: 20131126
  Receipt Date: 20131126
  Transmission Date: 20140711
  Serious: No
  Sender: FDA-Public Use
  Company Number: US-BRISTOL-MYERS SQUIBB COMPANY-19115757

PATIENT
  Sex: Female
  Weight: 126.07 kg

DRUGS (5)
  1. BYDUREON [Suspect]
     Indication: TYPE 2 DIABETES MELLITUS
     Route: 058
     Dates: start: 20130408, end: 20130618
  2. METFORMIN [Concomitant]
     Route: 048
  3. LANTUS [Concomitant]
  4. NOVOLOG [Concomitant]
     Dates: start: 20130710
  5. GLIMEPIRIDE [Concomitant]
     Route: 048

REACTIONS (2)
  - Rash [Not Recovered/Not Resolved]
  - Blister [Recovering/Resolving]
